FAERS Safety Report 24746032 (Version 2)
Quarter: 2025Q1

REPORT INFORMATION
  Report Type: Spontaneous
  Country: IR (occurrence: IR)
  Receive Date: 20241218
  Receipt Date: 20250120
  Transmission Date: 20250408
  Serious: Yes (Death, Life-Threatening, Hospitalization, Other)
  Sender: STRIDES
  Company Number: None

PATIENT
  Age: 17 Year
  Sex: Male

DRUGS (8)
  1. MYCOPHENOLIC ACID [Suspect]
     Active Substance: MYCOPHENOLIC ACID
     Indication: Takayasu^s arteritis
     Route: 065
  2. MYCOPHENOLIC ACID [Suspect]
     Active Substance: MYCOPHENOLIC ACID
     Indication: Central nervous system vasculitis
  3. PREDNISOLONE [Suspect]
     Active Substance: PREDNISOLONE
     Indication: Takayasu^s arteritis
     Route: 048
  4. PREDNISOLONE [Suspect]
     Active Substance: PREDNISOLONE
     Indication: Central nervous system vasculitis
     Route: 048
  5. METHYLPREDNISOLONE [Suspect]
     Active Substance: METHYLPREDNISOLONE
     Indication: Takayasu^s arteritis
     Route: 065
  6. METHYLPREDNISOLONE [Suspect]
     Active Substance: METHYLPREDNISOLONE
     Indication: Central nervous system vasculitis
  7. INFLIXIMAB [Suspect]
     Active Substance: INFLIXIMAB
     Indication: Takayasu^s arteritis
     Route: 065
  8. INFLIXIMAB [Suspect]
     Active Substance: INFLIXIMAB
     Indication: Central nervous system vasculitis

REACTIONS (13)
  - Nose deformity [Fatal]
  - Nasal septum perforation [Fatal]
  - Cardiac arrest [Fatal]
  - Bradycardia [Fatal]
  - COVID-19 [Fatal]
  - Immunosuppression [Fatal]
  - Swelling face [Unknown]
  - Mouth ulceration [Unknown]
  - Loss of consciousness [Unknown]
  - Mucormycosis [Fatal]
  - Epistaxis [Unknown]
  - Pneumonia cytomegaloviral [Unknown]
  - Pneumonia klebsiella [Unknown]
